FAERS Safety Report 4705678-0 (Version None)
Quarter: 2005Q2

REPORT INFORMATION
  Report Type: 
  Country: None (occurrence: None)
  Receive Date: 20050629
  Receipt Date: 20050621
  Transmission Date: 20051028
  Serious: Yes (Other)
  Sender: FDA-Public Use
  Company Number: 2005-05-0633

PATIENT
  Age: 59 Year
  Sex: Female
  Weight: 50 kg

DRUGS (7)
  1. INTRON A [Suspect]
     Indication: HEPATITIS C
     Dosage: 3 MIU TIW INTRAMUSCULAR
     Route: 030
     Dates: start: 20050504
  2. ETODOLAC [Suspect]
     Indication: PYREXIA
     Dosage: 200 MG ORAL
     Route: 048
     Dates: start: 20050504
  3. URSO TABLETS [Concomitant]
  4. LIVACT (ISOLEUCINE/LEUCINE/VALINE) [Concomitant]
  5. LASIX [Concomitant]
  6. ALDACTONE-A TABLETS [Concomitant]
  7. WARFARIN SODIUM [Concomitant]

REACTIONS (2)
  - PLATELET COUNT INCREASED [None]
  - PYREXIA [None]
